FAERS Safety Report 4984311-7 (Version None)
Quarter: 2006Q2

REPORT INFORMATION
  Report Type: 
  Country: None (occurrence: None)
  Receive Date: 20060420
  Receipt Date: 20060405
  Transmission Date: 20061013
  Serious: Yes (Hospitalization, Other)
  Sender: FDA-Public Use
  Company Number: GBR-2006-0002206

PATIENT
  Age: 74 Year
  Sex: Female

DRUGS (5)
  1. OXYCONTIN [Suspect]
     Indication: BACK PAIN
     Dosage: 2 UNIT, DAILY, ORAL
     Route: 048
     Dates: start: 20060127, end: 20060220
  2. XANAX [Suspect]
     Dosage: 0.375 MG, DAILY
     Dates: end: 20060217
  3. DOLIPRANE [Concomitant]
  4. ESOMEPRAZOLE (ESOMEPRAZOLE) [Concomitant]
  5. TARCEVA [Concomitant]

REACTIONS (5)
  - AMNESIA [None]
  - CONFUSIONAL STATE [None]
  - FALL [None]
  - MOBILITY DECREASED [None]
  - WRIST FRACTURE [None]
